FAERS Safety Report 6559755-2 (Version None)
Quarter: 2010Q1

REPORT INFORMATION
  Report Type: 
  Country: None (occurrence: None)
  Receive Date: 20100129
  Receipt Date: 20090914
  Transmission Date: 20100710
  Serious: No
  Sender: FDA-Public Use
  Company Number: US-ABBOTT-09P-163-0597019-00

PATIENT
  Sex: Female
  Weight: 48.124 kg

DRUGS (2)
  1. HUMIRA [Suspect]
     Indication: RHEUMATOID ARTHRITIS
     Dates: start: 20090828
  2. PREDNISONE [Concomitant]
     Indication: DRUG USE FOR UNKNOWN INDICATION
     Dates: start: 20090908

REACTIONS (5)
  - ASTHENIA [None]
  - DIZZINESS [None]
  - HYPOAESTHESIA ORAL [None]
  - LIP SWELLING [None]
  - PAIN [None]
